FAERS Safety Report 6590820-X (Version None)
Quarter: 2010Q1

REPORT INFORMATION
  Report Type: 
  Country: None (occurrence: None)
  Receive Date: 20100219
  Receipt Date: 20100209
  Transmission Date: 20100710
  Serious: Yes (Other)
  Sender: FDA-Public Use
  Company Number: US-PFIZER INC-2010018180

PATIENT
  Sex: Female

DRUGS (7)
  1. SUTENT [Suspect]
     Indication: LUNG NEOPLASM MALIGNANT
     Dosage: 25 MG, 1X/DAY
     Route: 048
     Dates: start: 20090101
  2. ATENOLOL [Concomitant]
     Indication: BLOOD PRESSURE ABNORMAL
     Dosage: UNK
  3. CLONIDINE [Concomitant]
     Indication: BLOOD PRESSURE ABNORMAL
     Dosage: UNK
  4. SYNTHROID [Concomitant]
     Indication: THYROID DISORDER
     Dosage: UNK
  5. METFORMIN [Concomitant]
     Indication: DIABETES MELLITUS
     Dosage: 2X/DAY
  6. WARFARIN [Concomitant]
     Indication: BLOOD COUNT ABNORMAL
     Dosage: 4 OR 5 MG, ALTERNATELY
  7. AMILORIDE [Concomitant]
     Indication: FLUID RETENTION
     Dosage: UNK

REACTIONS (1)
  - SKIN ULCER [None]
